FAERS Safety Report 22107457 (Version 1)
Quarter: 2023Q1

REPORT INFORMATION
  Report Type: Report from Study
  Country: US (occurrence: US)
  Receive Date: 20230317
  Receipt Date: 20230317
  Transmission Date: 20230418
  Serious: Yes (Hospitalization)
  Sender: FDA-Public Use
  Company Number: US-ABBVIE-4343384

PATIENT
  Sex: Male

DRUGS (1)
  1. HUMIRA [Suspect]
     Active Substance: ADALIMUMAB
     Indication: Crohn^s disease
     Dosage: CITRATE FREE?FORM STRENGTH: 40 MG
     Route: 058
     Dates: start: 20220730, end: 2023

REACTIONS (8)
  - Dizziness [Unknown]
  - Nervous system disorder [Unknown]
  - Unevaluable event [Unknown]
  - Tachycardia [Unknown]
  - Bradycardia [Unknown]
  - Autonomic nervous system imbalance [Unknown]
  - Urinary retention [Unknown]
  - Dehydration [Unknown]
